FAERS Safety Report 4411974-7 (Version None)
Quarter: 2004Q2

REPORT INFORMATION
  Report Type: 
  Country: None (occurrence: None)
  Receive Date: 20040630
  Receipt Date: 20040326
  Transmission Date: 20050107
  Serious: No
  Sender: FDA-Public Use
  Company Number: 04P-163-0254853-00

PATIENT
  Age: 72 Year
  Sex: Female
  Weight: 70.7611 kg

DRUGS (10)
  1. HUMIRA [Suspect]
     Indication: RHEUMATOID ARTHRITIS
     Dosage: 40 MG, 1 IN 2 WK, SUBCUTANEOUS
     Route: 058
     Dates: start: 20030511, end: 20030701
  2. HUMIRA [Suspect]
     Indication: RHEUMATOID ARTHRITIS
     Dosage: 40 MG, 1 IN 2 WK, SUBCUTANEOUS
     Route: 058
     Dates: start: 20030801
  3. CANDESARTAN CILEXETIL [Concomitant]
  4. PREDNISONE [Concomitant]
  5. METOPROLOL SUCCINATE [Concomitant]
  6. FERROUS GLUCONATE [Concomitant]
  7. PAMIDRONATE DISODIUM [Concomitant]
  8. PROPACET 100 [Concomitant]
  9. CALCIUM [Concomitant]
  10. ARTHROTEC [Concomitant]

REACTIONS (4)
  - ABNORMAL DREAMS [None]
  - INSOMNIA [None]
  - KERATOCONJUNCTIVITIS SICCA [None]
  - MYALGIA [None]
